FAERS Safety Report 8907530 (Version 1)
Quarter: 2012Q4

REPORT INFORMATION
  Report Type: 
  Country: US (occurrence: US)
  Receive Date: 20121114
  Receipt Date: 20121114
  Transmission Date: 20130627
  Serious: No
  Sender: FDA-Public Use
  Company Number: US-TEVA-368208USA

PATIENT
  Sex: Male
  Weight: 120.31 kg

DRUGS (3)
  1. NUVIGIL [Suspect]
     Indication: SLEEP APNOEA SYNDROME
     Dosage: 26-10
     Route: 048
     Dates: start: 20121026
  2. COUMADIN [Concomitant]
     Dosage: Takes 1 day/wk
  3. MULTIVITAMINS [Concomitant]

REACTIONS (2)
  - Drug ineffective [Unknown]
  - Off label use [Unknown]
